FAERS Safety Report 9353042 (Version 1)
Quarter: 2013Q2

REPORT INFORMATION
  Report Type: Spontaneous
  Country: CN (occurrence: CN)
  Receive Date: 20130618
  Receipt Date: 20130618
  Transmission Date: 20140414
  Serious: Yes (Hospitalization)
  Sender: FDA-Public Use
  Company Number: CN-JNJFOC-20130602681

PATIENT
  Age: 3 Year
  Sex: Male
  Weight: 17.5 kg

DRUGS (3)
  1. TYLENOL [Suspect]
     Route: 048
  2. TYLENOL [Suspect]
     Indication: PYREXIA
     Route: 048
  3. PARACETAMOL [Suspect]
     Indication: PYREXIA
     Route: 048
     Dates: start: 20120521, end: 20120523

REACTIONS (4)
  - Acute tonsillitis [Recovering/Resolving]
  - Rash scarlatiniform [Recovering/Resolving]
  - Rash pruritic [None]
  - Drug eruption [None]
